FAERS Safety Report 15547770 (Version 1)
Quarter: 2018Q4

REPORT INFORMATION
  Report Type: Spontaneous
  Country: US (occurrence: US)
  Receive Date: 20181024
  Receipt Date: 20181024
  Transmission Date: 20190205
  Serious: Yes (Other)
  Sender: FDA-Public Use
  Company Number: None

PATIENT
  Age: 70 Year
  Sex: Female

DRUGS (1)
  1. ESTRADIOL. [Suspect]
     Active Substance: ESTRADIOL
     Indication: OESTROGEN DEFICIENCY
     Dosage: ?          OTHER FREQUENCY:ONCE WEEKLY;?
     Route: 062
     Dates: start: 20180316, end: 20181017

REACTIONS (2)
  - Product adhesion issue [None]
  - Application site reaction [None]
